FAERS Safety Report 4391942-4 (Version None)
Quarter: 2004Q3

REPORT INFORMATION
  Report Type: 
  Country: None (occurrence: None)
  Receive Date: 20040701
  Receipt Date: 20040615
  Transmission Date: 20050211
  Serious: Yes (Other)
  Sender: FDA-Public Use
  Company Number: USA030843134

PATIENT
  Age: 56 Year
  Sex: Female
  Weight: 64 kg

DRUGS (7)
  1. FORTEO [Suspect]
     Indication: OSTEOPOROSIS
     Dosage: 20 UG/DAY
     Dates: start: 20030724
  2. PREVACID [Concomitant]
  3. CITRACAL (CALCIUM CITRATE) [Concomitant]
  4. CLARINEX [Concomitant]
  5. LIMBITROL [Concomitant]
  6. VITAMIN B-12 [Concomitant]
  7. CARAFATE [Concomitant]

REACTIONS (14)
  - ANXIETY [None]
  - ARTHRALGIA [None]
  - BACK PAIN [None]
  - BONE PAIN [None]
  - INJECTION SITE BURNING [None]
  - INJECTION SITE ERYTHEMA [None]
  - INJECTION SITE HAEMORRHAGE [None]
  - INJECTION SITE PAIN [None]
  - INJECTION SITE STINGING [None]
  - INSOMNIA [None]
  - INTERVERTEBRAL DISC PROTRUSION [None]
  - LIGAMENT INJURY [None]
  - MUSCLE STRAIN [None]
  - PHARMACEUTICAL PRODUCT COMPLAINT [None]
